FAERS Safety Report 19776467 (Version 1)
Quarter: 2021Q3

REPORT INFORMATION
  Report Type: Spontaneous
  Country: US (occurrence: US)
  Receive Date: 20210901
  Receipt Date: 20210901
  Transmission Date: 20211014
  Serious: No
  Sender: FDA-Public Use
  Company Number: US-LANNETT COMPANY, INC.-US-2021LAN000129

PATIENT
  Age: 73 Year
  Sex: Male

DRUGS (2)
  1. LACTULOSE. [Suspect]
     Active Substance: LACTULOSE
     Dosage: 2 TBSP, QD
     Route: 048
  2. LACTULOSE. [Suspect]
     Active Substance: LACTULOSE
     Indication: PRODUCT USED FOR UNKNOWN INDICATION
     Dosage: 1 TBSP, QD
     Route: 048

REACTIONS (2)
  - Constipation [Unknown]
  - Drug ineffective [Unknown]

NARRATIVE: CASE EVENT DATE: 202104
